FAERS Safety Report 14496381 (Version 1)
Quarter: 2018Q1

REPORT INFORMATION
  Report Type: Spontaneous
  Country: FR (occurrence: FR)
  Receive Date: 20180207
  Receipt Date: 20180207
  Transmission Date: 20180509
  Serious: Yes (Hospitalization)
  Sender: FDA-Public Use
  Company Number: FR-ASTRAZENECA-2018SE13064

PATIENT
  Age: 77 Year
  Sex: Male

DRUGS (1)
  1. XEROQUEL LP [Suspect]
     Active Substance: QUETIAPINE FUMARATE
     Indication: BIPOLAR DISORDER
     Route: 048
     Dates: start: 20170522, end: 20170617

REACTIONS (5)
  - Bradycardia [Recovered/Resolved]
  - Incorrect dose administered [Recovered/Resolved]
  - Dehydration [Recovered/Resolved]
  - Wrong drug [Recovered/Resolved]
  - Drug dispensing error [Recovered/Resolved]

NARRATIVE: CASE EVENT DATE: 20170522
